FAERS Safety Report 10410343 (Version 2)
Quarter: 2014Q3

REPORT INFORMATION
  Report Type: Spontaneous
  Country: US (occurrence: US)
  Receive Date: 20140826
  Receipt Date: 20140826
  Transmission Date: 20150326
  Serious: Yes (Hospitalization)
  Sender: FDA-Public Use
  Company Number: US-GLAXOSMITHKLINE-A0690184A

PATIENT
  Sex: Male
  Weight: 113.6 kg

DRUGS (15)
  1. NOVOLIN 70/30 [Concomitant]
     Active Substance: INSULIN HUMAN
  2. OXYCONTIN [Concomitant]
     Active Substance: OXYCODONE HYDROCHLORIDE
  3. METHOCARBAMOL. [Concomitant]
     Active Substance: METHOCARBAMOL
  4. LOTENSIN [Concomitant]
     Active Substance: BENAZEPRIL HYDROCHLORIDE
  5. NABUMETONE. [Concomitant]
     Active Substance: NABUMETONE
  6. TRAMADOL [Concomitant]
     Active Substance: TRAMADOL
  7. DILAUDID [Concomitant]
     Active Substance: HYDROMORPHONE HYDROCHLORIDE
  8. TOPAMAX [Concomitant]
     Active Substance: TOPIRAMATE
  9. GLIPIZIDE. [Concomitant]
     Active Substance: GLIPIZIDE
  10. AMBIEN [Concomitant]
     Active Substance: ZOLPIDEM TARTRATE
  11. AVANDIA [Suspect]
     Active Substance: ROSIGLITAZONE MALEATE
     Indication: TYPE 1 DIABETES MELLITUS
     Dosage: 4MG TWICE PER DAY
     Route: 048
     Dates: start: 2003
  12. ROBAXIN [Concomitant]
     Active Substance: METHOCARBAMOL
  13. PREVACID [Concomitant]
     Active Substance: LANSOPRAZOLE
  14. PROZAC [Concomitant]
     Active Substance: FLUOXETINE HYDROCHLORIDE
  15. LORAZEPAM. [Concomitant]
     Active Substance: LORAZEPAM

REACTIONS (10)
  - Depression [Unknown]
  - Pain [Unknown]
  - Hypertensive heart disease [Unknown]
  - Atrial flutter [Unknown]
  - Myocardial infarction [Unknown]
  - Ventricular tachycardia [Unknown]
  - Injury [Unknown]
  - Coronary artery disease [Unknown]
  - Decreased activity [Unknown]
  - Activities of daily living impaired [Unknown]
